FAERS Safety Report 10381717 (Version 1)
Quarter: 2014Q3

REPORT INFORMATION
  Report Type: Spontaneous
  Country: KR (occurrence: KR)
  Receive Date: 20140813
  Receipt Date: 20140813
  Transmission Date: 20150326
  Serious: Yes (Other)
  Sender: FDA-Public Use
  Company Number: KR-BAYER-2014-118713

PATIENT
  Age: 17 Year
  Sex: Male

DRUGS (1)
  1. ULTRAKON 300 [Suspect]
     Active Substance: IOPROMIDE
     Indication: COMPUTERISED TOMOGRAM
     Dosage: UNK, ONE TIME ONLY
     Route: 042
     Dates: start: 20140716, end: 20140716

REACTIONS (5)
  - Sneezing [Unknown]
  - Chest discomfort [Unknown]
  - Nausea [Unknown]
  - Blood pressure decreased [Unknown]
  - Vomiting [Unknown]

NARRATIVE: CASE EVENT DATE: 20140718
